FAERS Safety Report 7676827 (Version 4)
Quarter: 2013Q3

REPORT INFORMATION
  Report Type: Report from Study
  Country: NL (occurrence: NL)
  Receive Date: 20101119
  Receipt Date: 20130930
  Transmission Date: 20140515
  Serious: Yes (Hospitalization)
  Sender: FDA-Public Use
  Company Number: NL-MEDIMMUNE-MEDI-0011804

PATIENT
  Age: 4 Month
  Sex: Female
  Weight: 2.9 kg

DRUGS (1)
  1. SYNAGIS [Suspect]
     Indication: ANTIVIRAL PROPHYLAXIS
     Route: 030
     Dates: start: 2010, end: 20101105

REACTIONS (9)
  - Apnoea [Unknown]
  - Dyspnoea [Unknown]
  - Nervous system disorder [Unknown]
  - Respiratory syncytial virus infection [Unknown]
  - Electroencephalogram abnormal [Unknown]
  - Protein total increased [Unknown]
  - Fluid intake reduced [Unknown]
  - Asthenia [Unknown]
  - Cyanosis [Unknown]
